FAERS Safety Report 20390287 (Version 1)
Quarter: 2022Q1

REPORT INFORMATION
  Report Type: Spontaneous
  Country: PK (occurrence: None)
  Receive Date: 20220128
  Receipt Date: 20220128
  Transmission Date: 20220423
  Serious: Yes (Death)
  Sender: FDA-Public Use
  Company Number: PK-ROCHE-3005185

PATIENT
  Age: 30 Year
  Sex: Male

DRUGS (1)
  1. AVASTIN [Suspect]
     Active Substance: BEVACIZUMAB
     Indication: Non-small cell lung cancer
     Route: 042
     Dates: start: 20210803, end: 20210803

REACTIONS (2)
  - Pyrexia [Fatal]
  - Death [Fatal]

NARRATIVE: CASE EVENT DATE: 20211129
